FAERS Safety Report 8052561-1 (Version None)
Quarter: 2012Q1

REPORT INFORMATION
  Report Type: 
  Country: None (occurrence: None)
  Receive Date: 20120118
  Receipt Date: 20120109
  Transmission Date: 20120608
  Serious: Yes (Hospitalization)
  Sender: FDA-Public Use
  Company Number: US-BAYER-2011-038707

PATIENT
  Sex: Female
  Weight: 67 kg

DRUGS (3)
  1. YAZ [Suspect]
     Dosage: UNK
     Dates: start: 20011201, end: 20060101
  2. GUAIFENEX PSE [Concomitant]
     Route: 048
  3. YASMIN [Suspect]
     Dosage: UNK
     Dates: start: 20011201, end: 20060101

REACTIONS (5)
  - PAIN [None]
  - GALLBLADDER INJURY [None]
  - CHOLECYSTITIS CHRONIC [None]
  - ANXIETY [None]
  - ANHEDONIA [None]
